FAERS Safety Report 18791417 (Version 2)
Quarter: 2021Q1

REPORT INFORMATION
  Report Type: Spontaneous
  Country: JP (occurrence: JP)
  Receive Date: 20210126
  Receipt Date: 20210222
  Transmission Date: 20210419
  Serious: Yes (Death, Other)
  Sender: FDA-Public Use
  Company Number: JP-GILEAD-2021-0514254

PATIENT
  Age: 79 Year
  Sex: Male
  Weight: 46.6 kg

DRUGS (10)
  1. THERAPTIQUE [Concomitant]
     Indication: COVID-19
     Dosage: 45 MG, QD
     Route: 042
     Dates: start: 20210112, end: 20210112
  2. AVIGAN [Concomitant]
     Active Substance: FAVIPIRAVIR
     Dosage: 800 MG, BID
     Route: 048
     Dates: start: 20210111, end: 20210111
  3. GASTER [Concomitant]
     Active Substance: FAMOTIDINE
     Indication: COVID-19
     Dosage: 20 MG, QD
     Route: 042
     Dates: start: 20210108, end: 20210115
  4. DECADRON (DEXAMETHASONE SODIUM PHOSPHATE) [Concomitant]
     Active Substance: DEXAMETHASONE SODIUM PHOSPHATE
     Indication: COVID-19
     Dosage: 6.6 MG, QD
     Route: 041
     Dates: start: 20210107, end: 20210115
  5. VEKLURY [Suspect]
     Active Substance: REMDESIVIR
     Indication: COVID-19
     Dosage: 200 MG, QD
     Route: 041
     Dates: start: 20210111, end: 20210111
  6. MEROPENEM. [Concomitant]
     Active Substance: MEROPENEM
     Indication: COVID-19
     Dosage: 0.5 MG, BID
     Route: 041
     Dates: start: 20210107, end: 20210115
  7. BOSMIN [EPINEPHRINE] [Concomitant]
     Indication: COVID-19
     Dosage: 1 MG, QD
     Route: 042
     Dates: start: 20210112, end: 20210112
  8. AVIGAN [Concomitant]
     Active Substance: FAVIPIRAVIR
     Indication: COVID-19
     Dosage: 1800 MG, BID
     Route: 048
     Dates: start: 20210110, end: 20210110
  9. THERAPTIQUE [Concomitant]
     Dosage: 45 MG, BID
     Route: 042
     Dates: start: 20210114, end: 20210115
  10. VEKLURY [Suspect]
     Active Substance: REMDESIVIR
     Dosage: 100 MG, QD
     Route: 041
     Dates: start: 20210112, end: 20210115

REACTIONS (1)
  - COVID-19 [Fatal]

NARRATIVE: CASE EVENT DATE: 20210115
